FAERS Safety Report 17754226 (Version 1)
Quarter: 2020Q2

REPORT INFORMATION
  Report Type: Other
  Country: IR (occurrence: IR)
  Receive Date: 20200506
  Receipt Date: 20200506
  Transmission Date: 20200714
  Serious: Yes (Life-Threatening, Hospitalization)
  Sender: FDA-Public Use
  Company Number: IR-NOSTRUM LABORATORIES, INC.-2083564

PATIENT

DRUGS (1)
  1. METHADONE HYDROCHLORIDE TABLETS USP, 5 MG AND 10 MG [Suspect]
     Active Substance: METHADONE HYDROCHLORIDE
     Indication: ACCIDENTAL OVERDOSE
     Route: 048

REACTIONS (4)
  - Pneumonia aspiration [Unknown]
  - Accidental overdose [Unknown]
  - Coma [Unknown]
  - Seizure [Unknown]
